FAERS Safety Report 13373092 (Version 2)
Quarter: 2017Q2

REPORT INFORMATION
  Report Type: Spontaneous
  Country: US (occurrence: US)
  Receive Date: 20170327
  Receipt Date: 20170413
  Transmission Date: 20170830
  Serious: Yes (Other)
  Sender: FDA-Public Use
  Company Number: US-009507513-1703USA008767

PATIENT
  Age: 22 Year
  Sex: Female
  Weight: 68.75 kg

DRUGS (1)
  1. NEXPLANON [Suspect]
     Active Substance: ETONOGESTREL
     Dosage: 68 MG/ 1 ROD EVERY 3 YEARS
     Route: 059
     Dates: start: 20170301

REACTIONS (2)
  - Deafness [Unknown]
  - Scab [Unknown]

NARRATIVE: CASE EVENT DATE: 201703
